FAERS Safety Report 26116696 (Version 1)
Quarter: 2025Q4

REPORT INFORMATION
  Report Type: Spontaneous
  Country: RU (occurrence: RU)
  Receive Date: 20251203
  Receipt Date: 20251203
  Transmission Date: 20260117
  Serious: Yes (Hospitalization)
  Sender: NOVARTIS
  Company Number: RU-002147023-NVSC2025RU184488

PATIENT
  Sex: Female

DRUGS (3)
  1. ALPELISIB [Suspect]
     Active Substance: ALPELISIB
     Indication: Hormone receptor positive HER2 negative breast cancer
     Dosage: UNK
     Route: 048
  2. ALPELISIB [Suspect]
     Active Substance: ALPELISIB
     Indication: PIK3CA related overgrowth spectrum
  3. FULVESTRANT [Concomitant]
     Active Substance: FULVESTRANT
     Indication: Product used for unknown indication
     Dosage: UNK
     Route: 065

REACTIONS (3)
  - Anaphylactic reaction [Unknown]
  - Suffocation feeling [Unknown]
  - Rash [Unknown]
